FAERS Safety Report 16808876 (Version 1)
Quarter: 2019Q4

REPORT INFORMATION
  Report Type: Spontaneous
  Country: US (occurrence: US)
  Receive Date: 20190913
  Receipt Date: 20190913
  Transmission Date: 20200122
  Serious: Yes (Hospitalization)
  Sender: FDA-Public Use
  Company Number: None

PATIENT
  Age: 77 Year
  Sex: Female
  Weight: 83.1 kg

DRUGS (1)
  1. TETRACYCLINE [Suspect]
     Active Substance: TETRACYCLINE
     Indication: URINARY TRACT INFECTION
     Route: 048

REACTIONS (3)
  - Mental status changes [None]
  - Pancreatitis acute [None]
  - Tachycardia [None]

NARRATIVE: CASE EVENT DATE: 20190908
